FAERS Safety Report 4946782-1 (Version None)
Quarter: 2006Q1

REPORT INFORMATION
  Report Type: 
  Country: None (occurrence: None)
  Receive Date: 20060201
  Receipt Date: 20051214
  Transmission Date: 20060701
  Serious: No
  Sender: FDA-Public Use
  Company Number: 2005PV005852

PATIENT
  Age: 44 Year
  Sex: Male

DRUGS (6)
  1. BYETTA [Suspect]
     Indication: DIABETES MELLITUS NON-INSULIN-DEPENDENT
     Dosage: 10 MCG; SC; 5 MCG; SC
     Route: 058
     Dates: start: 20050901, end: 20051001
  2. BYETTA [Suspect]
     Indication: DIABETES MELLITUS NON-INSULIN-DEPENDENT
     Dosage: 10 MCG; SC; 5 MCG; SC
     Route: 058
     Dates: start: 20051001
  3. TRICOR [Concomitant]
  4. METFORMIN [Concomitant]
  5. PRAVACHOL [Concomitant]
  6. GEMFIBROZIL [Concomitant]

REACTIONS (2)
  - DYSPEPSIA [None]
  - FLATULENCE [None]
